FAERS Safety Report 5298892-X (Version None)
Quarter: 2007Q2

REPORT INFORMATION
  Report Type: 
  Country: None (occurrence: None)
  Receive Date: 20070417
  Receipt Date: 20070404
  Transmission Date: 20071010
  Serious: Yes (Other)
  Sender: FDA-Public Use
  Company Number: US-AMGEN-US215488

PATIENT
  Sex: Male

DRUGS (11)
  1. SENSIPAR [Suspect]
     Indication: HYPERPARATHYROIDISM SECONDARY
     Route: 048
     Dates: start: 20060101
  2. METOPROLOL SUCCINATE [Concomitant]
     Route: 065
  3. INSULIN [Concomitant]
     Route: 065
  4. MEPRON [Concomitant]
     Route: 065
  5. MYCELEX [Concomitant]
     Route: 065
  6. VALCYTET [Concomitant]
     Route: 065
  7. SODIUM BICARBONATE [Concomitant]
     Route: 065
  8. COLACE [Concomitant]
     Route: 065
  9. PROTONIX [Concomitant]
     Route: 065
  10. PROGRAF [Concomitant]
     Route: 065
  11. STRESSTABS [Concomitant]
     Route: 065

REACTIONS (4)
  - BLOOD PARATHYROID HORMONE INCREASED [None]
  - BURNING SENSATION [None]
  - OPEN WOUND [None]
  - PAIN [None]
